FAERS Safety Report 18309519 (Version 2)
Quarter: 2021Q1

REPORT INFORMATION
  Report Type: Report from Study
  Country: US (occurrence: US)
  Receive Date: 20200924
  Receipt Date: 20210204
  Transmission Date: 20210419
  Serious: Yes (Hospitalization)
  Sender: FDA-Public Use
  Company Number: NVSC2020US260370

PATIENT
  Age: 7 Year
  Sex: Female

DRUGS (11)
  1. INC424A [Suspect]
     Active Substance: RUXOLITINIB
     Dosage: 50 MG, BID 14D ON/14D OFF
     Route: 048
     Dates: start: 20200922
  2. MERCAPTOPURINE. [Concomitant]
     Active Substance: MERCAPTOPURINE
     Indication: ACUTE LYMPHOCYTIC LEUKAEMIA
     Dosage: 50MG (D1?14)
     Route: 048
     Dates: start: 20200819, end: 20200916
  3. MERCAPTOPURINE. [Concomitant]
     Active Substance: MERCAPTOPURINE
     Dosage: 50MG (D1?14)
     Route: 048
     Dates: start: 20200922
  4. VINCRISTINE [Concomitant]
     Active Substance: VINCRISTINE
     Indication: ACUTE LYMPHOCYTIC LEUKAEMIA
     Dosage: 1.5 MG (D15,22)
     Route: 042
     Dates: start: 20200902
  5. METHOTREXATE. [Suspect]
     Active Substance: METHOTREXATE
     Indication: ACUTE LYMPHOCYTIC LEUKAEMIA
     Dosage: 12 MG (D1,8,15, 22)
     Route: 037
     Dates: start: 20200819
  6. CYCLOPHOSPHAMIDE. [Concomitant]
     Active Substance: CYCLOPHOSPHAMIDE
     Dosage: 1000 MG X1 (D1)
     Route: 042
     Dates: start: 20200922
  7. CYTARABINE. [Concomitant]
     Active Substance: CYTARABINE
     Indication: ACUTE LYMPHOCYTIC LEUKAEMIA
     Dosage: 75MG (D1?4, 8?11)
     Route: 042
     Dates: start: 20200819, end: 20200916
  8. CYTARABINE. [Concomitant]
     Active Substance: CYTARABINE
     Dosage: 75MG (D1?4, 8?11)
     Route: 042
     Dates: start: 20200922
  9. PEGASPARGASE [Concomitant]
     Active Substance: PEGASPARGASE
     Indication: ACUTE LYMPHOCYTIC LEUKAEMIA
     Dosage: 4200 IU (D15, 43)
     Route: 042
     Dates: start: 20200902
  10. CYCLOPHOSPHAMIDE. [Concomitant]
     Active Substance: CYCLOPHOSPHAMIDE
     Indication: ACUTE LYMPHOCYTIC LEUKAEMIA
     Dosage: 1000 MG X1 (D1)
     Route: 042
     Dates: start: 20200819, end: 20200916
  11. INC424A [Suspect]
     Active Substance: RUXOLITINIB
     Indication: ACUTE LYMPHOCYTIC LEUKAEMIA
     Dosage: 50 MG, BID 14D ON/14D OFF
     Route: 048
     Dates: start: 20200819, end: 20200916

REACTIONS (2)
  - Toxicity to various agents [Recovered/Resolved]
  - Nervous system disorder [Recovered/Resolved]

NARRATIVE: CASE EVENT DATE: 20200916
